FAERS Safety Report 23773880 (Version 5)
Quarter: 2024Q3

REPORT INFORMATION
  Report Type: Report from Study
  Country: CH (occurrence: CH)
  Receive Date: 20240423
  Receipt Date: 20240711
  Transmission Date: 20241017
  Serious: Yes (Hospitalization)
  Sender: BAXTER
  Company Number: CH-BAXTER-2024BAX016958

PATIENT
  Age: 72 Year
  Sex: Female
  Weight: 64.3 kg

DRUGS (19)
  1. CYCLOPHOSPHAMIDE [Suspect]
     Active Substance: CYCLOPHOSPHAMIDE
     Indication: Diffuse large B-cell lymphoma stage II
     Dosage: 1240 MG, EVERY 3 WEEKS, ONGOING
     Route: 042
     Dates: start: 20240319
  2. MESNA [Suspect]
     Active Substance: MESNA
     Indication: Premedication
     Dosage: 400 MG, 2/DAYS
     Route: 065
     Dates: start: 20240319, end: 20240319
  3. EPCORITAMAB [Suspect]
     Active Substance: EPCORITAMAB
     Indication: Diffuse large B-cell lymphoma stage II
     Dosage: DRUG NOT ADMINISTERED
     Route: 065
  4. VINCRISTINE [Suspect]
     Active Substance: VINCRISTINE
     Indication: Diffuse large B-cell lymphoma stage II
     Dosage: 2 MG, EVERY 3 WEEKS, ONGOING
     Route: 042
     Dates: start: 20240319
  5. RITUXIMAB [Suspect]
     Active Substance: RITUXIMAB
     Indication: Diffuse large B-cell lymphoma stage II
     Dosage: 620 MG, EVERY 3 WEEKS, ONGOING
     Route: 042
     Dates: start: 20240319
  6. DOXORUBICIN [Suspect]
     Active Substance: DOXORUBICIN
     Indication: Diffuse large B-cell lymphoma stage II
     Dosage: 82.5 MG, EVERY 3 WEEKS, ONGOING
     Route: 042
     Dates: start: 20240319
  7. PREDNISONE [Suspect]
     Active Substance: PREDNISONE
     Indication: Diffuse large B-cell lymphoma stage II
     Dosage: 100 MG C1-6, D1-5, EVERY 1 DAYS, ONGOING
     Route: 048
     Dates: start: 20240319
  8. VALTREX [Concomitant]
     Active Substance: VALACYCLOVIR HYDROCHLORIDE
     Indication: Antiviral prophylaxis
     Dosage: 500 MG, AS NECESSARY
     Route: 065
     Dates: start: 20240319
  9. BACTRIM [Concomitant]
     Active Substance: SULFAMETHOXAZOLE\TRIMETHOPRIM
     Indication: Antibiotic prophylaxis
     Dosage: 800/160 MG, 3/WEEKS
     Route: 065
     Dates: start: 20240319
  10. OXYCODONE HYDROCHLORIDE [Concomitant]
     Active Substance: OXYCODONE HYDROCHLORIDE
     Indication: Tumour pain
     Dosage: 5 MG, AS NECESSARY
     Route: 065
     Dates: start: 20240319
  11. Novalgin [Concomitant]
     Indication: Tumour pain
     Dosage: 500 MG, 3/DAYS
     Route: 065
     Dates: start: 20240308, end: 20240409
  12. NALOXONE HYDROCHLORIDE\OXYCODONE HYDROCHLORIDE [Concomitant]
     Active Substance: NALOXONE HYDROCHLORIDE\OXYCODONE HYDROCHLORIDE
     Indication: Tumour pain
     Dosage: 20/10 MG, AS NECESSARY
     Route: 065
     Dates: start: 20240322
  13. DAFALGAN [Concomitant]
     Active Substance: ACETAMINOPHEN
     Indication: Tumour pain
     Dosage: 500 G, AS NECESSARY
     Route: 065
     Dates: start: 20240319
  14. PREDNISONE [Concomitant]
     Active Substance: PREDNISONE
     Indication: Product used for unknown indication
     Dosage: 50 MG FREQUENCY TWICE
     Route: 065
     Dates: start: 20240308, end: 20240412
  15. CLEMASTINE FUMARATE [Concomitant]
     Active Substance: CLEMASTINE FUMARATE
     Indication: Prophylaxis
     Dosage: 2MG/2ML, FREQUENCY TWICE
     Route: 065
     Dates: start: 20240319, end: 20240319
  16. CLEMASTINE FUMARATE [Concomitant]
     Active Substance: CLEMASTINE FUMARATE
     Indication: Premedication
  17. PALONOSETRON [Concomitant]
     Active Substance: PALONOSETRON
     Indication: Prophylaxis of nausea and vomiting
     Dosage: 0.25MG/5 ML, TOTAL
     Route: 065
     Dates: start: 20240319, end: 20240319
  18. PEGFILGRASTIM [Concomitant]
     Active Substance: PEGFILGRASTIM
     Indication: Prophylaxis
     Dosage: 6MG/0.6ML, TOTAL
     Route: 065
     Dates: start: 20240322, end: 20240322
  19. NALOXONE HYDROCHLORIDE\OXYCODONE HYDROCHLORIDE [Concomitant]
     Active Substance: NALOXONE HYDROCHLORIDE\OXYCODONE HYDROCHLORIDE
     Indication: Tumour pain
     Dosage: 10/5 MG, 2/DAYS
     Route: 065
     Dates: start: 20240308, end: 20240423

REACTIONS (4)
  - Syncope [Recovered/Resolved]
  - Nausea [Recovered/Resolved]
  - Nausea [Recovered/Resolved]
  - Vomiting [Recovered/Resolved]

NARRATIVE: CASE EVENT DATE: 20240324
